FAERS Safety Report 9029406 (Version 2)
Quarter: 2013Q2

REPORT INFORMATION
  Report Type: Spontaneous
  Country: DK (occurrence: DK)
  Receive Date: 20130125
  Receipt Date: 20130430
  Transmission Date: 20140414
  Serious: Yes (Life-Threatening, Hospitalization)
  Sender: FDA-Public Use
  Company Number: DK-NOVOPROD-368907

PATIENT
  Age: 61 Year
  Sex: Male
  Weight: 107 kg

DRUGS (5)
  1. VICTOZA [Suspect]
     Indication: TYPE 2 DIABETES MELLITUS
     Dosage: DOSIS: 1,2 MG S.C.STYRKE: 1,2 MG
     Route: 058
     Dates: start: 20111212
  2. SIMVASTATIN [Concomitant]
     Indication: HYPERCHOLESTEROLAEMIA
     Dates: start: 20100205
  3. LOSARTAN [Concomitant]
     Indication: HYPERTENSION
     Dates: start: 20100215
  4. AMLODIPIN [Concomitant]
     Indication: HYPERTENSION
     Dates: start: 20100215
  5. SPIRON [Concomitant]
     Indication: HYPERTENSION
     Dosage: UNK
     Dates: start: 20121101, end: 201211

REACTIONS (1)
  - Acute lymphocytic leukaemia [Not Recovered/Not Resolved]
